FAERS Safety Report 8672922 (Version 3)
Quarter: 2013Q1

REPORT INFORMATION
  Report Type: Spontaneous
  Country: US (occurrence: US)
  Receive Date: 20120719
  Receipt Date: 20130322
  Transmission Date: 20140127
  Serious: Yes (Congenital Anomaly, Other)
  Sender: FDA-Public Use
  Company Number: US-PFIZER INC-2012170677

PATIENT
  Sex: Male
  Weight: 3.7 kg

DRUGS (1)
  1. ZOLOFT [Suspect]
     Indication: DEPRESSION
     Dosage: UNK
     Route: 064
     Dates: start: 1998, end: 199907

REACTIONS (3)
  - Maternal exposure timing unspecified [Unknown]
  - Pulmonary valve stenosis congenital [Unknown]
  - Congenital heart valve disorder [Unknown]
